FAERS Safety Report 24366489 (Version 1)
Quarter: 2024Q3

REPORT INFORMATION
  Report Type: Spontaneous
  Country: US (occurrence: None)
  Receive Date: 20240926
  Receipt Date: 20240926
  Transmission Date: 20241017
  Serious: Yes (Hospitalization)
  Sender: Public
  Company Number: None

PATIENT
  Age: 45 Year
  Sex: Male
  Weight: 59 kg

DRUGS (5)
  1. FLUOROURACIL [Suspect]
     Active Substance: FLUOROURACIL
     Dates: end: 20240903
  2. LEUCOVORIN CALCIUM [Suspect]
     Active Substance: LEUCOVORIN CALCIUM
     Dates: end: 20240903
  3. ELOXATIN [Suspect]
     Active Substance: OXALIPLATIN
     Dates: end: 20240903
  4. ONDANSETRON [Concomitant]
     Active Substance: ONDANSETRON
  5. SODIUM CHLORIDE [Concomitant]
     Active Substance: SODIUM CHLORIDE

REACTIONS (6)
  - Vomiting [None]
  - Nausea [None]
  - Malignant ascites [None]
  - Metastases to peritoneum [None]
  - Carcinoid syndrome [None]
  - Small intestinal obstruction [None]

NARRATIVE: CASE EVENT DATE: 20240923
